FAERS Safety Report 10269173 (Version 1)
Quarter: 2014Q2

REPORT INFORMATION
  Report Type: Spontaneous
  Country: US (occurrence: US)
  Receive Date: 20140630
  Receipt Date: 20140630
  Transmission Date: 20141212
  Serious: No
  Sender: FDA-Public Use
  Company Number: US-SA-2014SA042013

PATIENT
  Sex: 0

DRUGS (1)
  1. HECTOROL [Suspect]
     Indication: PRODUCT USED FOR UNKNOWN INDICATION
     Dosage: PATIENT RECEIVED 08 DOSES OF DOXERCALCIFEROL
     Route: 065

REACTIONS (3)
  - Pruritus generalised [Unknown]
  - Nausea [Unknown]
  - Palpitations [Unknown]
